FAERS Safety Report 25955022 (Version 1)
Quarter: 2025Q4

REPORT INFORMATION
  Report Type: Report from Study
  Country: US (occurrence: US)
  Receive Date: 20251024
  Receipt Date: 20251024
  Transmission Date: 20260118
  Serious: Yes (Hospitalization, Other)
  Sender: EMD SERONO INC
  Company Number: US-Merck Healthcare KGaA-2025052932

PATIENT
  Age: 50 Year
  Sex: Male

DRUGS (1)
  1. REBIF [Suspect]
     Active Substance: INTERFERON BETA-1A
     Indication: Multiple sclerosis

REACTIONS (5)
  - Cardiac disorder [Unknown]
  - Liver disorder [Unknown]
  - Staphylococcal infection [Unknown]
  - Inadequate aseptic technique in use of product [Unknown]
  - Pain in extremity [Unknown]
